FAERS Safety Report 6177870-2 (Version None)
Quarter: 2009Q2

REPORT INFORMATION
  Report Type: 
  Country: None (occurrence: None)
  Receive Date: 20090504
  Receipt Date: 20090114
  Transmission Date: 20091009
  Serious: No
  Sender: FDA-Public Use
  Company Number: US-ALEXION-A200900034

PATIENT
  Sex: Female

DRUGS (10)
  1. SOLIRIS [Suspect]
     Indication: PAROXYSMAL NOCTURNAL HAEMOGLOBINURIA
     Dosage: 600 MG, QWK
     Route: 042
     Dates: start: 20080717, end: 20080807
  2. SOLIRIS [Suspect]
     Dosage: 900 MG, Q2WK
     Route: 042
     Dates: start: 20080814
  3. LASIX [Concomitant]
  4. ULTRAM [Concomitant]
  5. LABETALOL HCL [Concomitant]
  6. CARDURA                            /00639301/ [Concomitant]
  7. COZAAR [Concomitant]
  8. DIGOXIN [Concomitant]
  9. URSO FORTE [Concomitant]
  10. POTASSIUM CHLORIDE [Concomitant]

REACTIONS (1)
  - OCULAR ICTERUS [None]
